FAERS Safety Report 4347451-1 (Version None)
Quarter: 2004Q2

REPORT INFORMATION
  Report Type: 
  Country: None (occurrence: None)
  Receive Date: 20040426
  Receipt Date: 20040426
  Transmission Date: 20050107
  Serious: Yes (Hospitalization)
  Sender: FDA-Public Use
  Company Number: None

PATIENT
  Age: 76 Year
  Sex: Female
  Weight: 110.6777 kg

DRUGS (15)
  1. CLODRONATE LEIRAS OY [Suspect]
     Indication: METASTASES TO BONE
     Dosage: 1600 MG ONCE DAILY ORAL
     Route: 048
     Dates: start: 20030127, end: 20030423
  2. CLODRONATE LEIRAS OY [Suspect]
     Indication: PROPHYLAXIS
     Dosage: 1600 MG ONCE DAILY ORAL
     Route: 048
     Dates: start: 20030127, end: 20030423
  3. PLACEBO [Suspect]
  4. AMIODARONE HCL [Concomitant]
  5. COZAAR [Concomitant]
  6. LEVOTHYROXINE [Concomitant]
  7. FUROSEMIDE [Concomitant]
  8. K-DUR 10 [Concomitant]
  9. CELEBREX [Concomitant]
  10. ALLEGRA [Concomitant]
  11. CALCIUM [Concomitant]
  12. MULTI-VITAMIN [Concomitant]
  13. EFFEXOR [Concomitant]
  14. TAMOXIFEN CITRATE [Concomitant]
  15. METOPROLOL [Concomitant]

REACTIONS (5)
  - AORTIC VALVE INCOMPETENCE [None]
  - AORTIC VALVE SCLEROSIS [None]
  - CARDIAC FAILURE CONGESTIVE [None]
  - PNEUMONIA [None]
  - PULMONARY OEDEMA [None]
